FAERS Safety Report 25008314 (Version 1)
Quarter: 2025Q1

REPORT INFORMATION
  Report Type: Spontaneous
  Country: US (occurrence: US)
  Receive Date: 20250225
  Receipt Date: 20250225
  Transmission Date: 20250409
  Serious: No
  Sender: XELLIA PHARMACEUTICALS
  Company Number: US-Axellia-005258

PATIENT
  Sex: Female

DRUGS (28)
  1. VANCOMYCIN [Suspect]
     Active Substance: VANCOMYCIN
     Indication: Product used for unknown indication
  2. ACETAMINOPHEN [Concomitant]
     Active Substance: ACETAMINOPHEN
  3. APIXABAN [Concomitant]
     Active Substance: APIXABAN
  4. ATENOLOL [Concomitant]
     Active Substance: ATENOLOL
  5. ATORVASTATIN [Concomitant]
     Active Substance: ATORVASTATIN
  6. AZELASTINE [Concomitant]
     Active Substance: AZELASTINE
  7. BISMUTH SUBSALICYLATE [Concomitant]
     Active Substance: BISMUTH SUBSALICYLATE
  8. BUTALBITAL [Concomitant]
     Active Substance: BUTALBITAL
  9. CETIRIZINE [Concomitant]
     Active Substance: CETIRIZINE HYDROCHLORIDE
  10. CHOLECALCIFEROL [Concomitant]
     Active Substance: CHOLECALCIFEROL
  11. DULOXETINE [Concomitant]
     Active Substance: DULOXETINE
  12. ESOMEPRAZOLE [Concomitant]
     Active Substance: ESOMEPRAZOLE
  13. FELBAMATE [Concomitant]
     Active Substance: FELBAMATE
  14. FERROUS GLUCONATE [Concomitant]
     Active Substance: FERROUS GLUCONATE
  15. FLUTICASONE [Concomitant]
     Active Substance: FLUTICASONE
  16. GALCANEZUMAB [Concomitant]
     Active Substance: GALCANEZUMAB
  17. ALBUTEROL\IPRATROPIUM [Concomitant]
     Active Substance: ALBUTEROL\IPRATROPIUM
  18. LAMOTRIGINE [Concomitant]
     Active Substance: LAMOTRIGINE
  19. LEVOTHYROXINE [Concomitant]
     Active Substance: LEVOTHYROXINE
  20. LORAZEPAM [Concomitant]
     Active Substance: LORAZEPAM
  21. MIDAZOLAM [Concomitant]
     Active Substance: MIDAZOLAM
  22. NYSTATIN [Concomitant]
     Active Substance: NYSTATIN
  23. ONDANSETRON [Concomitant]
     Active Substance: ONDANSETRON
  24. PREDNISONE [Concomitant]
     Active Substance: PREDNISONE
  25. RIZATRIPTAN [Concomitant]
     Active Substance: RIZATRIPTAN
  26. TRAMADOL [Concomitant]
     Active Substance: TRAMADOL
  27. TRAMETINIB [Concomitant]
     Active Substance: TRAMETINIB
  28. VEMURAFENIB [Concomitant]
     Active Substance: VEMURAFENIB

REACTIONS (1)
  - Rash [Unknown]
